FAERS Safety Report 7340423-4 (Version None)
Quarter: 2011Q1

REPORT INFORMATION
  Report Type: 
  Country: None (occurrence: None)
  Receive Date: 20110309
  Receipt Date: 20110304
  Transmission Date: 20110831
  Serious: Yes (Hospitalization)
  Sender: FDA-Public Use
  Company Number: JP-SANOFI-AVENTIS-2011SA013767

PATIENT
  Age: 60 Year
  Sex: Female

DRUGS (5)
  1. ASVERIN [Concomitant]
     Route: 048
  2. KLARICID [Concomitant]
     Route: 048
  3. SELBEX [Concomitant]
     Route: 048
  4. MUCODYNE [Concomitant]
     Route: 048
  5. ALLEGRA [Suspect]
     Route: 048

REACTIONS (1)
  - TOXIC SKIN ERUPTION [None]
